FAERS Safety Report 8585189 (Version 3)
Quarter: 2013Q2

REPORT INFORMATION
  Report Type: Spontaneous
  Country: US (occurrence: US)
  Receive Date: 20120530
  Receipt Date: 20130517
  Transmission Date: 20140414
  Serious: Yes (Death, Other)
  Sender: FDA-Public Use
  Company Number: US-US-EMD SERONO, INC.-7135910

PATIENT
  Age: 54 Year
  Sex: Male

DRUGS (7)
  1. REBIF [Suspect]
     Indication: MULTIPLE SCLEROSIS
     Route: 058
     Dates: start: 20120509, end: 20120521
  2. REBIF [Suspect]
     Dates: start: 20120521, end: 20120523
  3. PAXIL [Concomitant]
     Indication: DEPRESSION
  4. PREDNISONE [Concomitant]
     Indication: MULTIPLE SCLEROSIS
  5. PREDNISONE [Concomitant]
     Indication: OPTIC NEURITIS
  6. SOLU-MEDROL [Concomitant]
     Indication: OPTIC NEURITIS
  7. SOLU-MEDROL [Concomitant]
     Indication: MULTIPLE SCLEROSIS

REACTIONS (2)
  - Completed suicide [Fatal]
  - Nervousness [Unknown]
